FAERS Safety Report 5558865-6 (Version None)
Quarter: 2007Q4

REPORT INFORMATION
  Report Type: 
  Country: None (occurrence: None)
  Receive Date: 20071214
  Receipt Date: 20070906
  Transmission Date: 20080405
  Serious: No
  Sender: FDA-Public Use
  Company Number: US-ABBOTT-07P-163-0416565-00

PATIENT
  Sex: Female
  Weight: 72.64 kg

DRUGS (3)
  1. HUMIRA [Suspect]
     Indication: RHEUMATOID ARTHRITIS
     Route: 058
     Dates: start: 20061101
  2. ROSIGLITAZONE MALEATE [Concomitant]
     Indication: TYPE 2 DIABETES MELLITUS
     Route: 048
  3. CELECOXIB [Concomitant]
     Indication: RHEUMATOID ARTHRITIS
     Route: 048

REACTIONS (1)
  - NASOPHARYNGITIS [None]
